FAERS Safety Report 17437356 (Version 1)
Quarter: 2020Q1

REPORT INFORMATION
  Report Type: Report from Study
  Country: IN (occurrence: IN)
  Receive Date: 20200219
  Receipt Date: 20200219
  Transmission Date: 20200409
  Serious: Yes (Hospitalization)
  Sender: FDA-Public Use
  Company Number: IN-JNJFOC-20191131291

PATIENT
  Age: 47 Year
  Sex: Male
  Weight: 60 kg

DRUGS (4)
  1. DIAPRIDE [Concomitant]
     Active Substance: GLIMEPIRIDE
     Dosage: M2
     Route: 065
     Dates: start: 20191120
  2. GOLIMUMAB [Suspect]
     Active Substance: GOLIMUMAB
     Indication: PSORIATIC ARTHROPATHY
     Dosage: PRE-FILLED SYRINGE
     Route: 058
     Dates: start: 20190920, end: 20191115
  3. ELTROXIN [Concomitant]
     Active Substance: LEVOTHYROXINE
     Indication: HYPOTHYROIDISM
  4. HUMAN MIXTARD [Concomitant]
     Active Substance: INSULIN HUMAN
     Dosage: 30/70  19 UNITS
     Route: 065
     Dates: start: 20191120

REACTIONS (2)
  - Lower respiratory tract infection bacterial [Recovered/Resolved]
  - Upper respiratory tract infection [Recovered/Resolved]

NARRATIVE: CASE EVENT DATE: 20191120
